FAERS Safety Report 6012846-7 (Version None)
Quarter: 2008Q4

REPORT INFORMATION
  Report Type: 
  Country: None (occurrence: None)
  Receive Date: 20081219
  Receipt Date: 20081209
  Transmission Date: 20090506
  Serious: Yes (Other)
  Sender: FDA-Public Use
  Company Number: DE-JNJFOC-20081104842

PATIENT
  Age: 54 Year
  Sex: Male
  Weight: 92 kg

DRUGS (2)
  1. REMICADE [Suspect]
     Indication: ANKYLOSING SPONDYLITIS
     Route: 042
  2. METHOTREXATE [Concomitant]

REACTIONS (2)
  - HERPES ZOSTER [None]
  - RASH GENERALISED [None]
